FAERS Safety Report 9112981 (Version 2)
Quarter: 2013Q1

REPORT INFORMATION
  Report Type: Report from Study
  Country: DE (occurrence: DE)
  Receive Date: 20130211
  Receipt Date: 20130211
  Transmission Date: 20140127
  Serious: Yes (Other)
  Sender: FDA-Public Use
  Company Number: DE-ROCHE-1186778

PATIENT
  Age: 43 Year
  Sex: Female
  Weight: 63 kg

DRUGS (4)
  1. BEVACIZUMAB [Suspect]
     Indication: BREAST CANCER
     Dosage: LAST DOSE PRIOR TO SAE WAS TAKEN ON 17/JAN/2013
     Route: 042
     Dates: start: 20121022, end: 20130130
  2. CARBOPLATIN [Suspect]
     Indication: BREAST CANCER
     Dosage: LAST DOSE PRIOR TO SAE WAS TAKEN ON 24/JAN/2013
     Route: 042
     Dates: start: 20121022
  3. PACLITAXEL [Suspect]
     Indication: BREAST CANCER
     Dosage: LAST DOSE PRIOR TO SAE WAS TAKEN ON 24/JAN/2013
     Route: 042
     Dates: start: 20121022
  4. DOXORUBICIN [Suspect]
     Indication: BREAST CANCER
     Dosage: LAST DOSE PRIOR TO SAE WAS TAKEN ON 24/JAN/2013
     Route: 042
     Dates: start: 20121022

REACTIONS (1)
  - Skin ulcer [Not Recovered/Not Resolved]
